FAERS Safety Report 8492798 (Version 15)
Quarter: 2015Q4

REPORT INFORMATION
  Report Type: Report from Study
  Country: US (occurrence: US)
  Receive Date: 20120404
  Receipt Date: 20151105
  Transmission Date: 20160305
  Serious: Yes (Death, Other)
  Sender: FDA-Public Use
  Company Number: US-BIOGENIDEC-2012BI011050

PATIENT
  Age: 32 Year
  Sex: Female
  Weight: 58 kg

DRUGS (2)
  1. TYSABRI [Suspect]
     Active Substance: NATALIZUMAB
     Indication: MULTIPLE SCLEROSIS
     Route: 042
     Dates: start: 20070921, end: 20120316
  2. TYSABRI [Suspect]
     Active Substance: NATALIZUMAB
     Indication: RELAPSING-REMITTING MULTIPLE SCLEROSIS
     Route: 042
     Dates: start: 20070921, end: 20120316

REACTIONS (7)
  - Progressive multifocal leukoencephalopathy [Not Recovered/Not Resolved]
  - Pneumonia [Fatal]
  - Immune reconstitution inflammatory syndrome [Unknown]
  - Multiple sclerosis [Unknown]
  - Urinary tract infection [Unknown]
  - Seizure [Unknown]
  - Burning sensation [Not Recovered/Not Resolved]

NARRATIVE: CASE EVENT DATE: 20120326
